FAERS Safety Report 21655066 (Version 3)
Quarter: 2022Q4

REPORT INFORMATION
  Report Type: Spontaneous
  Country: IL (occurrence: IL)
  Receive Date: 20221129
  Receipt Date: 20221213
  Transmission Date: 20230112
  Serious: Yes (Other)
  Sender: FDA-Public Use
  Company Number: IL-BAYER-2022P022904

PATIENT
  Age: 99 Year
  Sex: Female

DRUGS (7)
  1. EYLEA [Suspect]
     Active Substance: AFLIBERCEPT
     Indication: Age-related macular degeneration
     Dosage: OD, SOLUTION FOR INJECTION, 40 MG/ML
     Route: 031
     Dates: start: 20221110, end: 20221110
  2. AMLOW [AMLODIPINE MALEATE] [Concomitant]
     Indication: Product used for unknown indication
     Dosage: 5 MG
  3. FUROSEMIDE [Concomitant]
     Active Substance: FUROSEMIDE
     Indication: Product used for unknown indication
     Dosage: 40 MG
  4. LIPITOR [Concomitant]
     Active Substance: ATORVASTATIN CALCIUM
     Indication: Product used for unknown indication
     Dosage: 40 UNK
  5. PLAVIX [Concomitant]
     Active Substance: CLOPIDOGREL BISULFATE
     Indication: Product used for unknown indication
     Dosage: UNK
  6. NORMATEN [ATENOLOL] [Concomitant]
     Indication: Product used for unknown indication
     Dosage: UNK
  7. STERODEX [Concomitant]
     Indication: Product used for unknown indication

REACTIONS (3)
  - Blindness unilateral [Recovering/Resolving]
  - Endophthalmitis [Unknown]
  - Eye pain [Unknown]

NARRATIVE: CASE EVENT DATE: 20221110
